FAERS Safety Report 17692222 (Version 2)
Quarter: 2020Q2

REPORT INFORMATION
  Report Type: Report from Study
  Country: US (occurrence: US)
  Receive Date: 20200422
  Receipt Date: 20200428
  Transmission Date: 20200714
  Serious: Yes (Hospitalization, Other)
  Sender: FDA-Public Use
  Company Number: US-MYLANLABS-2020M1040220

PATIENT
  Age: 56 Year
  Sex: Female

DRUGS (2)
  1. HYDRALAZINE [Suspect]
     Active Substance: HYDRALAZINE HYDROCHLORIDE
     Indication: PRODUCT USED FOR UNKNOWN INDICATION
     Route: 065
  2. ISOVUE 300 [Suspect]
     Active Substance: IOPAMIDOL
     Indication: DIAGNOSTIC PROCEDURE
     Dosage: 125 MILLILITER
     Route: 042

REACTIONS (5)
  - Pulmonary mass [Recovered/Resolved]
  - Drug eruption [Recovered/Resolved]
  - Contrast media toxicity [Recovered/Resolved]
  - Lupus-like syndrome [Recovering/Resolving]
  - Iodine allergy [Recovered/Resolved]
